FAERS Safety Report 8926454 (Version 2)
Quarter: 2012Q4

REPORT INFORMATION
  Report Type: Report from Study
  Country: US (occurrence: US)
  Receive Date: 20121127
  Receipt Date: 20121228
  Transmission Date: 20130627
  Serious: Yes (Death)
  Sender: FDA-Public Use
  Company Number: US-ROCHE-1157272

PATIENT
  Sex: Female

DRUGS (11)
  1. CAPECITABINE [Suspect]
     Indication: NEOPLASM MALIGNANT
     Route: 065
  2. LASIX [Concomitant]
     Indication: CARDIAC FAILURE
     Route: 065
  3. ASPIRIN [Concomitant]
     Route: 065
  4. CARVEDILOL [Concomitant]
     Route: 065
  5. DIGOXIN [Concomitant]
     Route: 065
  6. NEXIUM [Concomitant]
     Route: 065
  7. HEPARIN [Concomitant]
     Dosage: 5000 units
     Route: 058
  8. METHYLPREDNISOLONE [Concomitant]
     Route: 065
  9. PAPAIN [Concomitant]
  10. UREA CREAM [Concomitant]
  11. MORPHINE [Concomitant]
     Route: 065

REACTIONS (1)
  - Death [Fatal]
